FAERS Safety Report 6769919-0 (Version None)
Quarter: 2010Q2

REPORT INFORMATION
  Report Type: 
  Country: None (occurrence: None)
  Receive Date: 20100615
  Receipt Date: 20100611
  Transmission Date: 20101027
  Serious: Yes (Hospitalization, Disabling)
  Sender: FDA-Public Use
  Company Number: A0864581A

PATIENT
  Age: 55 Year
  Sex: Male
  Weight: 118.2 kg

DRUGS (11)
  1. AVANDIA [Suspect]
     Dosage: 8MG PER DAY
     Route: 048
     Dates: start: 19980101, end: 20060701
  2. ALLOPURINOL [Concomitant]
  3. CARDIZEM [Concomitant]
  4. HYDROCODONE BITARTRATE [Concomitant]
  5. INSULIN [Concomitant]
  6. LASIX [Concomitant]
  7. METOPROLOL TARTRATE [Concomitant]
  8. PRILOSEC [Concomitant]
  9. PROGRAF [Concomitant]
  10. ZAROXOLYN [Concomitant]
  11. ZOCOR [Concomitant]

REACTIONS (5)
  - ANGINA UNSTABLE [None]
  - CARDIAC FAILURE CONGESTIVE [None]
  - CORONARY ARTERY DISEASE [None]
  - MYOCARDIAL ISCHAEMIA [None]
  - STENT PLACEMENT [None]
